FAERS Safety Report 6144484-X (Version None)
Quarter: 2009Q2

REPORT INFORMATION
  Report Type: 
  Country: None (occurrence: None)
  Receive Date: 20090406
  Receipt Date: 20090402
  Transmission Date: 20091009
  Serious: No
  Sender: FDA-Public Use
  Company Number: US-B.I. PHARMACEUTICALS,INC./RIDGEFIELD-2009-BP-04155BP

PATIENT
  Sex: Male

DRUGS (3)
  1. FLOMAX [Suspect]
     Indication: BENIGN PROSTATIC HYPERPLASIA
     Dosage: .4MG
     Route: 048
     Dates: start: 20050101, end: 20080401
  2. FLOMAX [Suspect]
     Route: 048
     Dates: start: 20080401
  3. SIMVASTATIN [Concomitant]
     Indication: BLOOD CHOLESTEROL INCREASED

REACTIONS (10)
  - BLADDER SPASM [None]
  - DRUG ADMINISTRATION ERROR [None]
  - INSOMNIA [None]
  - MICTURITION URGENCY [None]
  - NASAL CONGESTION [None]
  - POLLAKIURIA [None]
  - POSTNASAL DRIP [None]
  - RHINITIS [None]
  - UPPER RESPIRATORY TRACT INFECTION [None]
  - URINARY HESITATION [None]
